FAERS Safety Report 11178136 (Version 4)
Quarter: 2016Q4

REPORT INFORMATION
  Report Type: Spontaneous
  Country: US (occurrence: US)
  Receive Date: 20150610
  Receipt Date: 20161018
  Transmission Date: 20170206
  Serious: Yes (Other)
  Sender: FDA-Public Use
  Company Number: PHHY2015US065163

PATIENT
  Age: 77 Year
  Sex: Female

DRUGS (1)
  1. LETROZOLE. [Suspect]
     Active Substance: LETROZOLE
     Indication: INVASIVE DUCTAL BREAST CARCINOMA
     Dosage: 2.5 MG
     Route: 048
     Dates: start: 201211

REACTIONS (4)
  - Pain [Unknown]
  - Infection [Unknown]
  - Pruritus [Unknown]
  - Keloid scar [Not Recovered/Not Resolved]
